FAERS Safety Report 9061477 (Version 1)
Quarter: 2013Q1

REPORT INFORMATION
  Report Type: Spontaneous
  Country: US (occurrence: None)
  Receive Date: 20130118
  Receipt Date: 20130118
  Transmission Date: 20140127
  Serious: Yes (Death)
  Sender: FDA-Public Use
  Company Number: 2013MA000360

PATIENT
  Age: 50 Year
  Sex: Male

DRUGS (2)
  1. KADIAN (MORPHINE SULFATE EXTENDED-RELEASE) CAPSULES 80MG (AELLC) [Suspect]
     Indication: DRUG ABUSE
     Route: 048
  2. ETHANOL [Suspect]

REACTIONS (1)
  - Drug abuse [None]
